FAERS Safety Report 5574029-4 (Version None)
Quarter: 2007Q4

REPORT INFORMATION
  Report Type: 
  Country: None (occurrence: None)
  Receive Date: 20071221
  Receipt Date: 20071210
  Transmission Date: 20080405
  Serious: Yes (Other)
  Sender: FDA-Public Use
  Company Number: 2007S1011561

PATIENT
  Age: 51 Year
  Sex: Female

DRUGS (2)
  1. ATENOLOL [Suspect]
     Indication: HYPERTENSION
     Dosage: 50 MG; TABLET;ORAL;DAILY
     Route: 048
     Dates: start: 20050901, end: 20070901
  2. CLONIDINE [Concomitant]

REACTIONS (7)
  - CHEST PAIN [None]
  - DYSPNOEA [None]
  - FEELING COLD [None]
  - HEART RATE DECREASED [None]
  - HEART RATE INCREASED [None]
  - POLLAKIURIA [None]
  - WEIGHT DECREASED [None]
